FAERS Safety Report 7087179-0 (Version None)
Quarter: 2010Q4

REPORT INFORMATION
  Report Type: 
  Country: None (occurrence: None)
  Receive Date: 20101106
  Receipt Date: 20101101
  Transmission Date: 20110411
  Serious: No
  Sender: FDA-Public Use
  Company Number: US-WYE-H18499610

PATIENT
  Sex: Female
  Weight: 90.8 kg

DRUGS (9)
  1. PREMARIN [Suspect]
     Indication: VULVOVAGINAL BURNING SENSATION
     Route: 067
     Dates: start: 20100506
  2. PREMARIN [Suspect]
     Indication: BLOOD OESTROGEN DECREASED
  3. METFORMIN HCL [Concomitant]
  4. METHADONE [Concomitant]
  5. ZOCOR [Concomitant]
  6. NEXIUM [Concomitant]
  7. SYNTHROID [Concomitant]
  8. LISINOPRIL [Concomitant]
  9. GLIPIZIDE [Concomitant]

REACTIONS (6)
  - BURNING SENSATION [None]
  - CONFUSIONAL STATE [None]
  - FRUSTRATION [None]
  - MENTAL DISORDER [None]
  - UNDERDOSE [None]
  - VULVOVAGINAL DRYNESS [None]
